FAERS Safety Report 9975557 (Version 1)
Quarter: 2014Q1

REPORT INFORMATION
  Report Type: Report from Study
  Country: US (occurrence: US)
  Receive Date: 20140306
  Receipt Date: 20140306
  Transmission Date: 20141002
  Serious: No
  Sender: FDA-Public Use
  Company Number: US-ABBVIE-13P-163-1158590-00

PATIENT
  Age: 61 Year
  Sex: Female

DRUGS (16)
  1. HUMIRA [Suspect]
     Indication: ANKYLOSING SPONDYLITIS
     Dates: start: 20131002
  2. LISINOPRIL [Suspect]
     Indication: HYPERTENSION
  3. AMLODIPINE BESYLATE [Concomitant]
     Indication: HYPERTENSION
     Dates: start: 20131006
  4. REQUIP [Concomitant]
     Indication: RESTLESS LEGS SYNDROME
  5. CITALOPRAM [Concomitant]
     Indication: DEPRESSION
  6. WELCHOL [Concomitant]
     Indication: BLOOD CHOLESTEROL INCREASED
  7. ADVAIR [Concomitant]
     Indication: ASTHMA
  8. ALBUTEROL [Concomitant]
     Indication: ASTHMA
     Dosage: RESCUE INHALER
     Route: 055
  9. AROMASIN [Concomitant]
     Indication: BREAST CANCER
  10. METHOTREXATE [Concomitant]
     Indication: ARTHRITIS
  11. FOLIC ACID [Concomitant]
     Indication: PRODUCT USED FOR UNKNOWN INDICATION
  12. POTASSIUM [Concomitant]
     Indication: MUSCLE SPASMS
  13. IBUPROFEN [Concomitant]
     Indication: PAIN
  14. VALTREX [Concomitant]
     Indication: ORAL HERPES
  15. ZOVOREX [Concomitant]
     Indication: ORAL HERPES
  16. ASPIRIN [Concomitant]
     Indication: PRODUCT USED FOR UNKNOWN INDICATION

REACTIONS (3)
  - Drug ineffective [Not Recovered/Not Resolved]
  - Acne [Not Recovered/Not Resolved]
  - Pruritus [Not Recovered/Not Resolved]
